FAERS Safety Report 8463196-0 (Version None)
Quarter: 2012Q2

REPORT INFORMATION
  Report Type: 
  Country: None (occurrence: None)
  Receive Date: 20120625
  Receipt Date: 20120424
  Transmission Date: 20120825
  Serious: No
  Sender: FDA-Public Use
  Company Number: US-ASTRAZENECA-2011SE56764

PATIENT
  Age: 35 Year
  Sex: Female

DRUGS (1)
  1. SEROQUEL XR [Suspect]
     Indication: MENTAL DISORDER
     Route: 048

REACTIONS (4)
  - DRUG DOSE OMISSION [None]
  - OFF LABEL USE [None]
  - DRUG WITHDRAWAL SYNDROME [None]
  - INSOMNIA [None]
